FAERS Safety Report 7115769-5 (Version None)
Quarter: 2010Q4

REPORT INFORMATION
  Report Type: 
  Country: None (occurrence: None)
  Receive Date: 20101122
  Receipt Date: 20101103
  Transmission Date: 20110411
  Serious: Yes (Other)
  Sender: FDA-Public Use
  Company Number: US-AMGEN-KDL441089

PATIENT

DRUGS (7)
  1. ENBREL [Suspect]
     Indication: RHEUMATOID ARTHRITIS
     Dosage: 50 MG, QWK
     Route: 030
     Dates: start: 20100301
  2. METHOTREXATE [Concomitant]
     Dosage: 15 MG, QWK
     Route: 048
  3. DICLOFENAC SODIUM [Concomitant]
     Dosage: 75 MG, BID
  4. PLAQUENIL                          /00072601/ [Concomitant]
     Dosage: 200 MG, BID
  5. ULTRACET [Concomitant]
     Dosage: 2 UNK, UNK
  6. PREDNISONE [Concomitant]
     Dosage: 5 MG, UNK
  7. PROTONIX [Concomitant]
     Dosage: 40 MG, UNK

REACTIONS (7)
  - ARTHRALGIA [None]
  - DIARRHOEA [None]
  - OEDEMA PERIPHERAL [None]
  - PYREXIA [None]
  - RASH PRURITIC [None]
  - STRESS [None]
  - SYSTEMIC LUPUS ERYTHEMATOSUS RASH [None]
